FAERS Safety Report 18757700 (Version 1)
Quarter: 2021Q1

REPORT INFORMATION
  Report Type: Report from Study
  Country: US (occurrence: US)
  Receive Date: 20210119
  Receipt Date: 20210119
  Transmission Date: 20210419
  Serious: Yes (Hospitalization, Other)
  Sender: FDA-Public Use
  Company Number: US-SHIRE-US201702119

PATIENT
  Age: 70 Year
  Sex: Male

DRUGS (8)
  1. TEDUGLUTIDE [Suspect]
     Active Substance: TEDUGLUTIDE
     Dosage: 2 DOSAGE FORM, QD
     Route: 058
     Dates: start: 20151113, end: 20210104
  2. TEDUGLUTIDE [Suspect]
     Active Substance: TEDUGLUTIDE
     Dosage: 2 DOSAGE FORM, QD
     Route: 058
     Dates: start: 20151113, end: 20210104
  3. TEDUGLUTIDE [Suspect]
     Active Substance: TEDUGLUTIDE
     Indication: SHORT-BOWEL SYNDROME
     Dosage: 0.45 MILLILITER, QD
     Route: 058
     Dates: start: 20130719
  4. TEDUGLUTIDE [Suspect]
     Active Substance: TEDUGLUTIDE
     Dosage: 2 DOSAGE FORM, QD
     Route: 058
     Dates: start: 20151113, end: 20210104
  5. TEDUGLUTIDE [Suspect]
     Active Substance: TEDUGLUTIDE
     Indication: SHORT-BOWEL SYNDROME
     Dosage: 0.45 MILLILITER, QD
     Route: 058
     Dates: start: 20130719
  6. TEDUGLUTIDE [Suspect]
     Active Substance: TEDUGLUTIDE
     Indication: SHORT-BOWEL SYNDROME
     Dosage: 0.45 MILLILITER, QD
     Route: 058
     Dates: start: 20130719
  7. TEDUGLUTIDE [Suspect]
     Active Substance: TEDUGLUTIDE
     Indication: SHORT-BOWEL SYNDROME
     Dosage: 0.45 MILLILITER, QD
     Route: 058
     Dates: start: 20130719
  8. TEDUGLUTIDE [Suspect]
     Active Substance: TEDUGLUTIDE
     Dosage: 2 DOSAGE FORM, QD
     Route: 058
     Dates: start: 20151113, end: 20210104

REACTIONS (2)
  - Dehydration [Unknown]
  - Therapy cessation [Not Recovered/Not Resolved]

NARRATIVE: CASE EVENT DATE: 20210104
